FAERS Safety Report 10266243 (Version 1)
Quarter: 2014Q2

REPORT INFORMATION
  Report Type: Spontaneous
  Country: US (occurrence: US)
  Receive Date: 20140627
  Receipt Date: 20140627
  Transmission Date: 20141212
  Serious: No
  Sender: FDA-Public Use
  Company Number: US-009507513-1406USA011447

PATIENT
  Sex: Male

DRUGS (2)
  1. PEGINTRON [Suspect]
     Indication: HEPATITIS C
     Dosage: REDIPEN, 1 STANDART DOSE OF 1
     Route: 058
     Dates: start: 2005
  2. REBETOL [Suspect]
     Dosage: UNK
     Route: 048
     Dates: start: 2005

REACTIONS (1)
  - Hepatitis C virus test positive [Not Recovered/Not Resolved]
